FAERS Safety Report 18754188 (Version 2)
Quarter: 2021Q1

REPORT INFORMATION
  Report Type: Spontaneous
  Country: US (occurrence: US)
  Receive Date: 20210119
  Receipt Date: 20210212
  Transmission Date: 20210419
  Serious: Yes (Other)
  Sender: FDA-Public Use
  Company Number: US-JNJFOC-20210118894

PATIENT
  Age: 81 Year
  Sex: Male

DRUGS (1)
  1. ZYTIGA [Suspect]
     Active Substance: ABIRATERONE ACETATE
     Indication: PROSTATE CANCER
     Route: 048
     Dates: start: 202006

REACTIONS (5)
  - Asthenia [Unknown]
  - Urinary retention [Not Recovered/Not Resolved]
  - Contusion [Unknown]
  - Rash pruritic [Unknown]
  - Orthopnoea [Unknown]

NARRATIVE: CASE EVENT DATE: 2020
